FAERS Safety Report 19372856 (Version 1)
Quarter: 2021Q2

REPORT INFORMATION
  Report Type: Spontaneous
  Country: US (occurrence: US)
  Receive Date: 20210604
  Receipt Date: 20210604
  Transmission Date: 20210717
  Serious: Yes (Disabling)
  Sender: FDA-Public Use
  Company Number: None

PATIENT
  Age: 30 Year
  Sex: Female
  Weight: 83.25 kg

DRUGS (1)
  1. NEXPLANON [Suspect]
     Active Substance: ETONOGESTREL
     Indication: CONTRACEPTIVE IMPLANT
     Route: 058
     Dates: start: 20210510, end: 20210602

REACTIONS (3)
  - Suicidal ideation [None]
  - Mood swings [None]
  - Depression [None]

NARRATIVE: CASE EVENT DATE: 20210602
